FAERS Safety Report 7994448-6 (Version None)
Quarter: 2011Q4

REPORT INFORMATION
  Report Type: 
  Country: None (occurrence: None)
  Receive Date: 20111220
  Receipt Date: 20111024
  Transmission Date: 20120403
  Serious: No
  Sender: FDA-Public Use
  Company Number: US-GLAXOSMITHKLINE-A0950259A

PATIENT
  Age: 51 Year
  Sex: Male

DRUGS (4)
  1. LYRICA [Concomitant]
  2. CYCLOBENZAPRINE [Concomitant]
  3. LAMICTAL [Suspect]
     Indication: PAIN
     Dosage: 100MG PER DAY
     Route: 048
     Dates: start: 20100101
  4. CORTIZONE SHOT [Concomitant]

REACTIONS (3)
  - DIZZINESS [None]
  - FEELING ABNORMAL [None]
  - POISONING [None]
